FAERS Safety Report 12210281 (Version 1)
Quarter: 2016Q1

REPORT INFORMATION
  Report Type: Spontaneous
  Country: US (occurrence: US)
  Receive Date: 20160325
  Receipt Date: 20160325
  Transmission Date: 20160526
  Serious: Yes (Death, Other)
  Sender: FDA-Public Use
  Company Number: US-ASTELLAS-2016US010952

PATIENT
  Age: 7 Year
  Sex: Male

DRUGS (3)
  1. AMBISOME [Suspect]
     Active Substance: AMPHOTERICIN B
     Dosage: UNK, UNKNOWN FREQ.
     Route: 037
  2. RIFAMPIN. [Concomitant]
     Active Substance: RIFAMPIN
     Indication: PRODUCT USED FOR UNKNOWN INDICATION
     Dosage: UNK UNK, UNKNOWN FREQ.
     Route: 065
  3. AMBISOME [Suspect]
     Active Substance: AMPHOTERICIN B
     Indication: MENINGOENCEPHALITIS AMOEBIC
     Dosage: UNK UNK, UNKNOWN FREQ.
     Route: 042

REACTIONS (1)
  - Drug ineffective for unapproved indication [Fatal]
